FAERS Safety Report 11887049 (Version 1)
Quarter: 2016Q1

REPORT INFORMATION
  Report Type: Spontaneous
  Country: US (occurrence: US)
  Receive Date: 20160104
  Receipt Date: 20160104
  Transmission Date: 20160526
  Serious: No
  Sender: FDA-Public Use
  Company Number: US-ASTRAZENECA-2013SE52023

PATIENT
  Age: 47 Year
  Sex: Female
  Weight: 114.8 kg

DRUGS (1)
  1. BYETTA [Suspect]
     Active Substance: EXENATIDE
     Indication: DIABETES MELLITUS
     Dosage: 250 MCG / 2.4 ML, 2.4 ML TWO TIMES A DAY
     Route: 058
     Dates: start: 201406, end: 20150313

REACTIONS (4)
  - Nausea [Unknown]
  - Injection site pruritus [Recovered/Resolved]
  - Diarrhoea [Unknown]
  - Injection site pain [Recovered/Resolved]

NARRATIVE: CASE EVENT DATE: 20130710
